FAERS Safety Report 5033221-8 (Version None)
Quarter: 2006Q2

REPORT INFORMATION
  Report Type: 
  Country: None (occurrence: None)
  Receive Date: 20060622
  Receipt Date: 20060125
  Transmission Date: 20061013
  Serious: Yes (Life-Threatening, Hospitalization)
  Sender: FDA-Public Use
  Company Number: US-BOEHRINGER INGELHEIM PHARMACEUTICALS, INC.-2006-BP-00905BP

PATIENT
  Age: 62 Year
  Sex: Female
  Weight: 72.73 kg

DRUGS (17)
  1. COMBIVENT [Suspect]
     Indication: DYSPNOEA
     Route: 055
     Dates: start: 20051128, end: 20051226
  2. THALIDOMIDE [Concomitant]
  3. LYRICA [Concomitant]
  4. CELEBREX [Concomitant]
  5. CYTOXAN [Concomitant]
     Route: 042
  6. SOLU-MEDROL [Concomitant]
     Route: 042
  7. VELCADE [Concomitant]
     Route: 042
  8. DARVON [Concomitant]
  9. SOMA [Concomitant]
  10. VALIUM [Concomitant]
  11. ZOCOR [Concomitant]
  12. PAMIDRONATE DISODIUM [Concomitant]
  13. BORTEZOMIB [Concomitant]
  14. AMBIEN [Concomitant]
  15. PAIN CREAM COMBINATION [Concomitant]
  16. ADVAIR DISKUS 100/50 [Concomitant]
  17. ALBUTEROL [Concomitant]

REACTIONS (1)
  - PNEUMONIA [None]
